FAERS Safety Report 19145580 (Version 1)
Quarter: 2021Q2

REPORT INFORMATION
  Report Type: Spontaneous
  Country: US (occurrence: US)
  Receive Date: 20210416
  Receipt Date: 20210416
  Transmission Date: 20210717
  Serious: Yes (Hospitalization)
  Sender: FDA-Public Use
  Company Number: None

PATIENT
  Age: 47 Year
  Sex: Female
  Weight: 127 kg

DRUGS (3)
  1. TALIMOGENE IAHERPAREPVEC [Suspect]
     Active Substance: TALIMOGENE LAHERPAREPVEC
     Indication: MALIGNANT MELANOMA
     Dosage: INTRALESIONAL
     Dates: end: 20210407
  2. PFIZER?BIONTECH COVID?19 VACCINE [Concomitant]
     Active Substance: TOZINAMERAN
     Dates: start: 20210302, end: 20210323
  3. PEMBROLIZUMAB Q21 DAYS ONGOING [Concomitant]

REACTIONS (10)
  - Herpes simplex [None]
  - Injection site swelling [None]
  - Herpes zoster [None]
  - Rash [None]
  - Myalgia [None]
  - Pyrexia [None]
  - Rash pustular [None]
  - Pain of skin [None]
  - Urinary tract infection [None]
  - Chills [None]

NARRATIVE: CASE EVENT DATE: 20210413
